FAERS Safety Report 12888700 (Version 2)
Quarter: 2017Q4

REPORT INFORMATION
  Report Type: Spontaneous
  Country: JP (occurrence: JP)
  Receive Date: 20161027
  Receipt Date: 20171115
  Transmission Date: 20180320
  Serious: Yes (Other)
  Sender: FDA-Public Use
  Company Number: PHHY2015JP125954

PATIENT
  Age: 72 Year
  Sex: Male

DRUGS (3)
  1. VOTRIENT [Suspect]
     Active Substance: PAZOPANIB HYDROCHLORIDE
     Indication: ANGIOSARCOMA
     Dosage: 800 MG, QD
     Route: 048
  2. VOTRIENT [Suspect]
     Active Substance: PAZOPANIB HYDROCHLORIDE
     Indication: METASTASIS
     Dosage: 600 MG (600 OR 400 MG), QD
     Route: 048
  3. INTERLEUKIN-2 [Suspect]
     Active Substance: ALDESLEUKIN
     Indication: SKIN ANGIOSARCOMA
     Dosage: UNK
     Route: 065

REACTIONS (4)
  - Angiosarcoma [Unknown]
  - Skin mass [Unknown]
  - Epistaxis [Unknown]
  - Metastases to skin [Unknown]
